FAERS Safety Report 8302210-X (Version None)
Quarter: 2012Q2

REPORT INFORMATION
  Report Type: 
  Country: None (occurrence: None)
  Receive Date: 20120418
  Receipt Date: 20120416
  Transmission Date: 20120825
  Serious: Yes (Other)
  Sender: FDA-Public Use
  Company Number: ADR-2011-10882

PATIENT
  Sex: Female

DRUGS (2)
  1. CLONIDINE [Concomitant]
  2. LIORESAL [Suspect]
     Indication: MUSCLE SPASTICITY
     Dosage: 87 MCG, DAILY, INTRATHE
     Route: 037

REACTIONS (3)
  - MUSCLE SPASTICITY [None]
  - DEVICE ALARM ISSUE [None]
  - THERAPEUTIC RESPONSE UNEXPECTED [None]
